FAERS Safety Report 20639342 (Version 1)
Quarter: 2022Q1

REPORT INFORMATION
  Report Type: Report from Study
  Country: US (occurrence: US)
  Receive Date: 20220326
  Receipt Date: 20220326
  Transmission Date: 20220424
  Serious: Yes (Hospitalization)
  Sender: FDA-Public Use
  Company Number: US-Accord-257855

PATIENT
  Age: 54 Year
  Sex: Female

DRUGS (1)
  1. CLOZAPINE [Suspect]
     Active Substance: CLOZAPINE
     Indication: Product used for unknown indication
     Dosage: 200MG NIGHTLY
     Route: 048

REACTIONS (1)
  - Septic shock [Unknown]

NARRATIVE: CASE EVENT DATE: 20220313
